FAERS Safety Report 5132406-X (Version None)
Quarter: 2006Q4

REPORT INFORMATION
  Report Type: 
  Country: None (occurrence: None)
  Receive Date: 20061017
  Receipt Date: 20061003
  Transmission Date: 20070319
  Serious: Yes (Hospitalization)
  Sender: FDA-Public Use
  Company Number: FR200610000598

PATIENT
  Age: 83 Year
  Sex: Female

DRUGS (10)
  1. FORTEO [Suspect]
     Indication: OSTEOPOROSIS
     Dosage: 20 UG, DAILY (1/D), SUBCUTANEOUS
     Route: 058
     Dates: start: 20060517
  2. FORTEO [Concomitant]
  3. BRICANYL [Concomitant]
  4. OXEOL (BAMBUTEROL HYDROCHLORIDE) [Concomitant]
  5. HYDROCORTISONE ACETATE [Concomitant]
  6. PLAVIX [Concomitant]
  7. IKOREL (NICORANDIL) [Concomitant]
  8. ALDALIX (FUROSEMIDE, SPIRONOLACTONE) [Concomitant]
  9. GAVISCON [Concomitant]
  10. NATISPRAY (GLYCERYL TRINITRATE) [Concomitant]

REACTIONS (2)
  - CONDITION AGGRAVATED [None]
  - RESPIRATORY FAILURE [None]
